FAERS Safety Report 4646374-8 (Version None)
Quarter: 2005Q2

REPORT INFORMATION
  Report Type: 
  Country: None (occurrence: None)
  Receive Date: 20050427
  Receipt Date: 20050315
  Transmission Date: 20051028
  Serious: Yes (Other)
  Sender: FDA-Public Use
  Company Number: PHFR2005IE01226

PATIENT
  Age: 20 Year
  Sex: Female

DRUGS (7)
  1. CLOZARIL [Suspect]
     Indication: SCHIZOPHRENIA
     Dosage: UNK, UNK
     Route: 048
     Dates: start: 20041208
  2. CLOZARIL [Suspect]
     Dosage: 650 MG/DAY
     Route: 048
     Dates: start: 20041216
  3. CHLORPROMAZINE [Concomitant]
     Indication: AGITATION
     Dosage: 25 MG/DAY
     Route: 048
     Dates: start: 20050202, end: 20050302
  4. RISPERIDONE [Concomitant]
     Indication: PSYCHOTIC DISORDER
     Dosage: 3 MG/DAY
     Route: 048
     Dates: start: 20041223, end: 20050226
  5. CIPRAMIL                                /NET/ [Concomitant]
     Indication: DEPRESSION
     Dosage: 30 MG/DAY
     Route: 048
     Dates: start: 20040221
  6. AMISULPRIDE [Concomitant]
     Indication: PSYCHOTIC DISORDER
     Dosage: 400 MG, BID
     Route: 048
     Dates: start: 20050221
  7. AKINETON                                /AUS/ [Concomitant]
     Dosage: 1 MG, BID
     Route: 048
     Dates: start: 20050205, end: 20050304

REACTIONS (4)
  - BLOOD LACTATE DEHYDROGENASE INCREASED [None]
  - CHEST PAIN [None]
  - HYPOTENSION [None]
  - TACHYCARDIA [None]
